FAERS Safety Report 9989612 (Version 1)
Quarter: 2014Q1

REPORT INFORMATION
  Report Type: Report from Study
  Country: US (occurrence: US)
  Receive Date: 20140310
  Receipt Date: 20140310
  Transmission Date: 20141002
  Serious: No
  Sender: FDA-Public Use
  Company Number: US-ABBVIE-13P-163-1129801-00

PATIENT
  Age: 49 Year
  Sex: Female
  Weight: 52.21 kg

DRUGS (3)
  1. HUMIRA [Suspect]
     Indication: CROHN^S DISEASE
     Dates: start: 201304, end: 201304
  2. HUMIRA [Suspect]
     Dates: start: 201305, end: 201305
  3. HUMIRA [Suspect]
     Dates: start: 201305

REACTIONS (1)
  - Injection site pain [Not Recovered/Not Resolved]
